FAERS Safety Report 7735223-7 (Version None)
Quarter: 2011Q3

REPORT INFORMATION
  Report Type: 
  Country: None (occurrence: None)
  Receive Date: 20110907
  Receipt Date: 20110829
  Transmission Date: 20111222
  Serious: Yes (Hospitalization)
  Sender: FDA-Public Use
  Company Number: DE-GILEAD-2011-0043382

PATIENT
  Sex: Female
  Weight: 66 kg

DRUGS (1)
  1. AMBRISENTAN [Suspect]
     Indication: PULMONARY ARTERIAL HYPERTENSION
     Route: 048
     Dates: start: 20110106, end: 20110109

REACTIONS (5)
  - DIARRHOEA [None]
  - SUBACUTE HEPATIC FAILURE [None]
  - NAUSEA [None]
  - OEDEMA [None]
  - VOMITING [None]
